FAERS Safety Report 9526764 (Version 2)
Quarter: 2015Q1

REPORT INFORMATION
  Report Type: Spontaneous
  Country: US (occurrence: US)
  Receive Date: 20130916
  Receipt Date: 20150218
  Transmission Date: 20150721
  Serious: Yes (Hospitalization, Other)
  Sender: FDA-Public Use
  Company Number: US-GLAXOSMITHKLINE-A1041035A

PATIENT
  Sex: Female

DRUGS (7)
  1. ALBUTEROL WITH NEBULIZER [Concomitant]
  2. NEBULIZER (NAME UNKNOWN) [Concomitant]
  3. PROAIR HFA [Concomitant]
     Active Substance: ALBUTEROL SULFATE
  4. ADVAIR HFA [Suspect]
     Active Substance: FLUTICASONE PROPIONATE\SALMETEROL XINAFOATE
     Indication: ASTHMA
     Dosage: 1 PUFF(S), BID
     Route: 055
     Dates: start: 200309
  5. ADVAIR HFA [Suspect]
     Active Substance: FLUTICASONE PROPIONATE\SALMETEROL XINAFOATE
     Indication: ASTHMA
     Dosage: 1 PUFF(S), BID
     Route: 055
     Dates: start: 200307, end: 200309
  6. PROVENTIL [Suspect]
     Active Substance: ALBUTEROL
     Indication: ASTHMA
     Dosage: UNK
     Route: 055
  7. THEOPHYLLINE [Suspect]
     Active Substance: THEOPHYLLINE ANHYDROUS
     Indication: ASTHMA
     Dosage: UNK
     Route: 048

REACTIONS (12)
  - Asthma [Recovering/Resolving]
  - Amnesia [Unknown]
  - Loss of consciousness [Recovering/Resolving]
  - Drug ineffective [Recovering/Resolving]
  - Chest discomfort [Recovering/Resolving]
  - Drug dose omission [Unknown]
  - Memory impairment [Recovering/Resolving]
  - Depression [Recovering/Resolving]
  - Respiratory failure [Recovering/Resolving]
  - Hospitalisation [Recovering/Resolving]
  - Endotracheal intubation [Recovering/Resolving]
  - Apparent death [Recovered/Resolved]
